FAERS Safety Report 10957933 (Version 1)
Quarter: 2015Q1

REPORT INFORMATION
  Report Type: Spontaneous
  Country: US (occurrence: US)
  Receive Date: 20150326
  Receipt Date: 20150326
  Transmission Date: 20150721
  Serious: Yes (Hospitalization, Other)
  Sender: FDA-Public Use
  Company Number: US-ELI_LILLY_AND_COMPANY-US201503008978

PATIENT
  Age: 30 Year
  Sex: Female

DRUGS (7)
  1. INSULIN REGULAR                    /01223201/ [Concomitant]
     Dosage: 10 IU, EACH EVENING
     Route: 065
  2. PROZAC [Suspect]
     Active Substance: FLUOXETINE HYDROCHLORIDE
     Indication: DEPRESSION
     Dosage: 40 MG, QD
     Route: 065
  3. ZANTAC [Concomitant]
     Active Substance: RANITIDINE HYDROCHLORIDE
     Dosage: 150 MG, BID
     Route: 065
  4. INSULIN NPH                        /01223208/ [Concomitant]
     Dosage: 24 IU, EACH EVENING
     Route: 065
  5. PROZAC [Suspect]
     Active Substance: FLUOXETINE HYDROCHLORIDE
     Indication: ANXIETY
     Dosage: 20 MG, QD
     Route: 065
     Dates: end: 19970602
  6. INSULIN REGULAR                    /01223201/ [Concomitant]
     Dosage: 19 IU, EACH MORNING
     Route: 065
  7. INSULIN NPH                        /01223208/ [Concomitant]
     Dosage: 24 IU, EACH MORNING
     Route: 065

REACTIONS (4)
  - Hypertension [Unknown]
  - Premature labour [Unknown]
  - Exposure during pregnancy [Recovered/Resolved]
  - Hypoglycaemia [Recovered/Resolved]

NARRATIVE: CASE EVENT DATE: 19980109
